FAERS Safety Report 4731360-X (Version None)
Quarter: 2005Q3

REPORT INFORMATION
  Report Type: 
  Country: None (occurrence: None)
  Receive Date: 20050801
  Receipt Date: 20050801
  Transmission Date: 20060218
  Serious: Yes (Life-Threatening, Hospitalization, Disabling)
  Sender: FDA-Public Use
  Company Number: None

PATIENT
  Age: 35 Year
  Sex: Female
  Weight: 135 kg

DRUGS (2)
  1. FENFLURAMINE [Suspect]
     Indication: OBESITY
     Dosage: ORAL
     Route: 048
     Dates: start: 19950101, end: 19950401
  2. PHENTERMINE [Suspect]

REACTIONS (1)
  - PULMONARY HYPERTENSION [None]
